FAERS Safety Report 7534560-9 (Version None)
Quarter: 2011Q2

REPORT INFORMATION
  Report Type: 
  Country: None (occurrence: None)
  Receive Date: 20110609
  Receipt Date: 20090825
  Transmission Date: 20111010
  Serious: Yes (Death, Hospitalization)
  Sender: FDA-Public Use
  Company Number: PHHY2009JP25576

PATIENT
  Sex: Female

DRUGS (8)
  1. EXJADE [Suspect]
     Indication: MYELODYSPLASTIC SYNDROME
     Dosage: 1000 MG, DAILY
     Route: 048
     Dates: start: 20081020, end: 20081209
  2. DESFERAL [Concomitant]
     Indication: IRON OVERLOAD
     Dosage: 50 MG, DAILY
     Route: 042
     Dates: start: 20070522, end: 20081221
  3. PRIMOBOLAN [Concomitant]
     Indication: MYELODYSPLASTIC SYNDROME
     Dosage: 15 MG, UNK
     Route: 048
     Dates: start: 20081020, end: 20081211
  4. GLAKAY [Concomitant]
     Indication: MYELODYSPLASTIC SYNDROME
     Dosage: 45 MG, UNK
     Route: 048
     Dates: start: 20081020, end: 20081211
  5. PREDNISOLONE [Concomitant]
     Indication: MYELODYSPLASTIC SYNDROME
     Dosage: 10 MG, UNK
     Route: 048
     Dates: start: 20081020, end: 20081211
  6. GRAN [Concomitant]
     Indication: MYELODYSPLASTIC SYNDROME
     Dosage: 150 UG, UNK
     Dates: start: 20081026, end: 20081221
  7. DIOVAN [Concomitant]
     Indication: HYPERTENSION
     Dosage: 80 MG, UNK
     Route: 048
     Dates: start: 20081020, end: 20081203
  8. RED CELLS MAP [Concomitant]
     Dosage: 2 UNITS EVERY THREE AND HALF DAYS
     Dates: start: 20081020, end: 20081219

REACTIONS (5)
  - MYELODYSPLASTIC SYNDROME [None]
  - SEPSIS [None]
  - FEBRILE NEUTROPENIA [None]
  - NEOPLASM MALIGNANT [None]
  - PNEUMONIA [None]
